FAERS Safety Report 5768099-8 (Version None)
Quarter: 2008Q2

REPORT INFORMATION
  Report Type: 
  Country: None (occurrence: None)
  Receive Date: 20080612
  Receipt Date: 20080606
  Transmission Date: 20081010
  Serious: Yes (Hospitalization, Other)
  Sender: FDA-Public Use
  Company Number: BR-AVENTIS-200814993GDDC

PATIENT
  Age: 13 Year
  Sex: Female
  Weight: 50 kg

DRUGS (3)
  1. ARAVA [Suspect]
     Indication: SPONDYLITIS
     Route: 048
     Dates: start: 20080425, end: 20080527
  2. ARAVA [Suspect]
     Route: 048
     Dates: start: 20080528
  3. MELOXICAM [Concomitant]
     Indication: PAIN

REACTIONS (13)
  - ABDOMINAL PAIN [None]
  - DEPRESSION [None]
  - ERYTHEMA [None]
  - HEART RATE INCREASED [None]
  - LIVER DISORDER [None]
  - NAUSEA [None]
  - OEDEMA [None]
  - OFF LABEL USE [None]
  - PALLOR [None]
  - RENAL DISORDER [None]
  - URINE COLOUR ABNORMAL [None]
  - VERTIGO [None]
  - VOMITING [None]
